FAERS Safety Report 6922982-6 (Version None)
Quarter: 2010Q3

REPORT INFORMATION
  Report Type: 
  Country: None (occurrence: None)
  Receive Date: 20100813
  Receipt Date: 20100803
  Transmission Date: 20110219
  Serious: Yes (Other)
  Sender: FDA-Public Use
  Company Number: FR-PFIZER INC-2010015845

PATIENT
  Age: 40 Year
  Sex: Female
  Weight: 68 kg

DRUGS (2)
  1. LYRICA [Suspect]
     Indication: FIBROMYALGIA
     Dosage: UNK
  2. CYMBALTA [Suspect]
     Indication: DEPRESSION
     Dosage: UNK

REACTIONS (2)
  - GALACTORRHOEA [None]
  - HYPERPROLACTINAEMIA [None]
